FAERS Safety Report 6154279-9 (Version None)
Quarter: 2009Q2

REPORT INFORMATION
  Report Type: 
  Country: None (occurrence: None)
  Receive Date: 20090414
  Receipt Date: 20090414
  Transmission Date: 20091009
  Serious: Yes (Disabling, Other)
  Sender: FDA-Public Use
  Company Number: PHHO2006BE03441

PATIENT
  Sex: Female
  Weight: 86 kg

DRUGS (7)
  1. CGS 20267 T30748+ [Suspect]
     Indication: BREAST CANCER
     Dosage: 2.5 MG, QD
     Route: 048
     Dates: start: 20020830
  2. TAMOXIFEN CITRATE [Suspect]
     Dosage: 20 MG, QD
     Dates: end: 20060227
  3. CO-DIOVANE [Concomitant]
     Indication: HYPERTENSION
  4. MARCUMAR [Concomitant]
     Indication: CARDIAC DISORDER
  5. SOTALOL HYDROCHLORIDE [Concomitant]
     Indication: CARDIAC DISORDER
  6. MOXON [Concomitant]
     Indication: HYPERTENSION
  7. FUROSEMIDE [Concomitant]
     Indication: CARDIAC DISORDER

REACTIONS (3)
  - CARDIAC FAILURE [None]
  - DYSPNOEA [None]
  - FATIGUE [None]
